FAERS Safety Report 23896909 (Version 1)
Quarter: 2024Q2

REPORT INFORMATION
  Report Type: Spontaneous
  Country: US (occurrence: US)
  Receive Date: 20240524
  Receipt Date: 20240524
  Transmission Date: 20240716
  Serious: Yes (Hospitalization)
  Sender: FDA-Public Use
  Company Number: US-DRL-USA-LIT/USA/24/0007519

PATIENT
  Age: 57 Year
  Sex: Male

DRUGS (3)
  1. SEVELAMER [Suspect]
     Active Substance: SEVELAMER
     Indication: Hyperphosphataemia
  2. CALCITRIOL [Concomitant]
     Active Substance: CALCITRIOL
     Indication: Hyperphosphataemia
  3. CALCITRIOL [Concomitant]
     Active Substance: CALCITRIOL
     Indication: Hyperparathyroidism

REACTIONS (3)
  - Colitis ischaemic [Unknown]
  - Ulcer [Unknown]
  - Gastrointestinal haemorrhage [Recovered/Resolved]
